FAERS Safety Report 9940413 (Version 1)
Quarter: 2014Q1

REPORT INFORMATION
  Report Type: Spontaneous
  Country: US (occurrence: US)
  Receive Date: 20140303
  Receipt Date: 20140303
  Transmission Date: 20141002
  Serious: Yes (Death)
  Sender: FDA-Public Use
  Company Number: US-BANPHARM-20142193

PATIENT
  Age: 33 Year
  Sex: Female

DRUGS (7)
  1. DIPHENHYDRAMINE/ACETAMINOPHEN [Suspect]
  2. METFORMIN [Suspect]
  3. COCAINE [Suspect]
  4. ALPRAZOLAM [Suspect]
  5. PREGABALIN 150 MG [Suspect]
  6. NAPROXEN 375 MG [Concomitant]
  7. HYDROXYCHLOROQUINE SULFATE 200 MG [Concomitant]

REACTIONS (2)
  - Completed suicide [Fatal]
  - Death [Fatal]
